FAERS Safety Report 10435890 (Version 1)
Quarter: 2014Q3

REPORT INFORMATION
  Report Type: Spontaneous
  Country: US (occurrence: US)
  Receive Date: 20140908
  Receipt Date: 20140908
  Transmission Date: 20150326
  Serious: No
  Sender: FDA-Public Use
  Company Number: US-GLAXOSMITHKLINE-A1075080A

PATIENT
  Age: 69 Year
  Sex: Male

DRUGS (5)
  1. BREO ELLIPTA [Suspect]
     Active Substance: FLUTICASONE FUROATE\VILANTEROL TRIFENATATE
     Indication: CHRONIC OBSTRUCTIVE PULMONARY DISEASE
     Dosage: 1PUFF PER DAY
     Route: 055
     Dates: start: 201404
  2. OXYGEN. [Concomitant]
     Active Substance: OXYGEN
  3. INHALER [Concomitant]
     Active Substance: UNSPECIFIED INGREDIENT
  4. PREDNISONE. [Concomitant]
     Active Substance: PREDNISONE
  5. ALBUTEROL + IPRATROPIUM BROMIDE [Concomitant]
     Active Substance: ALBUTEROL\IPRATROPIUM BROMIDE

REACTIONS (6)
  - Fatigue [Unknown]
  - Therapeutic response decreased [Unknown]
  - Nervousness [Unknown]
  - Dyspnoea [Unknown]
  - Oral candidiasis [Recovered/Resolved]
  - Asthenia [Unknown]
